FAERS Safety Report 5453477-7 (Version None)
Quarter: 2007Q3

REPORT INFORMATION
  Report Type: 
  Country: None (occurrence: None)
  Receive Date: 20070913
  Receipt Date: 20070906
  Transmission Date: 20080115
  Serious: Yes (Death)
  Sender: FDA-Public Use
  Company Number: 2007EN000083

PATIENT
  Age: 63 Year
  Sex: Male

DRUGS (4)
  1. ABELCET [Suspect]
     Indication: ZYGOMYCOSIS
     Dosage: 5 MG/KG; QD; IV
     Route: 042
  2. FLUCONAZOLE [Concomitant]
  3. MYCOPHENOLATE MOFETIL [Concomitant]
  4. TACROLIMUS [Concomitant]

REACTIONS (11)
  - ACUTE GRAFT VERSUS HOST DISEASE IN SKIN [None]
  - DIARRHOEA [None]
  - DISEASE RECURRENCE [None]
  - GRAFT VERSUS HOST DISEASE [None]
  - HEPATIC LESION [None]
  - LARGE INTESTINAL ULCER [None]
  - MUCORMYCOSIS [None]
  - PLEURITIC PAIN [None]
  - PNEUMONITIS [None]
  - PULMONARY HAEMORRHAGE [None]
  - PYREXIA [None]
